FAERS Safety Report 11631071 (Version 1)
Quarter: 2015Q4

REPORT INFORMATION
  Report Type: Spontaneous
  Country: US (occurrence: US)
  Receive Date: 20151014
  Receipt Date: 20151014
  Transmission Date: 20160304
  Serious: No
  Sender: FDA-Public Use
  Company Number: GXBR2015US002065

PATIENT
  Age: 78 Year
  Sex: Female
  Weight: 61.22 kg

DRUGS (1)
  1. CLEMASTINE SANDOZ [Suspect]
     Active Substance: CLEMASTINE
     Indication: PRURITUS
     Dosage: 1.34 MG, QW4
     Route: 048
     Dates: start: 201507

REACTIONS (1)
  - Dizziness [Unknown]

NARRATIVE: CASE EVENT DATE: 201507
